FAERS Safety Report 4409947-3 (Version None)
Quarter: 2004Q3

REPORT INFORMATION
  Report Type: 
  Country: None (occurrence: None)
  Receive Date: 20040728
  Receipt Date: 20040305
  Transmission Date: 20050211
  Serious: Yes (Other)
  Sender: FDA-Public Use
  Company Number: PHBS2004JP03250

PATIENT
  Age: 48 Year
  Sex: Male

DRUGS (1)
  1. DIOVAN [Suspect]
     Dosage: 40 MG, QD
     Route: 048
     Dates: start: 20030829, end: 20040307

REACTIONS (3)
  - MACULAR OEDEMA [None]
  - VISUAL DISTURBANCE [None]
  - VISUAL FIELD DEFECT [None]
